FAERS Safety Report 7265026-1 (Version None)
Quarter: 2011Q1

REPORT INFORMATION
  Report Type: 
  Country: None (occurrence: None)
  Receive Date: 20110131
  Receipt Date: 20101130
  Transmission Date: 20110831
  Serious: No
  Sender: FDA-Public Use
  Company Number: US-BAYER-201038318NA

PATIENT
  Sex: Female
  Weight: 61.224 kg

DRUGS (9)
  1. CEPHALEXIN [Concomitant]
  2. NAPROXEN [Concomitant]
     Indication: MIGRAINE
     Dosage: UNK
     Dates: start: 20070101
  3. TOPAMAX [Concomitant]
     Dosage: 25 MG, UNK
     Route: 048
     Dates: start: 20070730
  4. YASMIN [Suspect]
  5. YAZ [Suspect]
     Indication: PRODUCT USED FOR UNKNOWN INDICATION
     Route: 065
  6. MACROBID [Concomitant]
  7. SYNTHROID [Concomitant]
     Indication: HYPOTHYROIDISM
     Dosage: 150 MG, UNK
     Dates: start: 20070913
  8. YASMIN [Suspect]
     Indication: MIGRAINE
     Dosage: UNK UNK, UNK
     Route: 065
     Dates: start: 20040101, end: 20070101
  9. NITROFURANTOIN [Concomitant]
     Dosage: 100 MG, UNK
     Route: 048
     Dates: start: 20070731

REACTIONS (4)
  - OEDEMA PERIPHERAL [None]
  - THROMBOPHLEBITIS SUPERFICIAL [None]
  - PAIN IN EXTREMITY [None]
  - ERYTHEMA [None]
